FAERS Safety Report 8897408 (Version 1)
Quarter: 2012Q4

REPORT INFORMATION
  Report Type: 
  Country: US (occurrence: US)
  Receive Date: 20121108
  Receipt Date: 20121108
  Transmission Date: 20130627
  Serious: No
  Sender: FDA-Public Use
  Company Number: US-AMGEN-USASP2012025811

PATIENT
  Age: 47 Year
  Sex: Male

DRUGS (10)
  1. ENBREL [Suspect]
     Indication: PRODUCT USED FOR UNKNOWN INDICATION
     Dosage: 50 mg, qwk
     Route: 058
  2. ZOCOR [Concomitant]
     Dosage: 40 mg, UNK
  3. FLEXERIL                           /00428402/ [Concomitant]
     Dosage: 10 mg, UNK
  4. RESTASIS [Concomitant]
     Dosage: UNK
  5. RAMIPRIL [Concomitant]
     Dosage: 2.5 mg, UNK
  6. VICODIN [Concomitant]
     Dosage: UNK
  7. NITRO-DUR [Concomitant]
     Dosage: 0.1 UNK, UNK
  8. GLUCOPHAGE [Concomitant]
     Dosage: 500 mg, UNK
  9. TOPROL [Concomitant]
     Dosage: 25 mg, UNK
  10. CELEXA                             /00582602/ [Concomitant]
     Dosage: 20 mg, UNK

REACTIONS (2)
  - Nausea [Unknown]
  - Pyrexia [Unknown]
